FAERS Safety Report 20777737 (Version 1)
Quarter: 2022Q2

REPORT INFORMATION
  Report Type: Spontaneous
  Country: GB (occurrence: None)
  Receive Date: 20220503
  Receipt Date: 20220503
  Transmission Date: 20220721
  Serious: Yes (Other)
  Sender: FDA-Public Use
  Company Number: 2022A171504

PATIENT
  Sex: Male

DRUGS (2)
  1. QUETIAPINE [Suspect]
     Active Substance: QUETIAPINE
     Indication: Schizoaffective disorder
     Dosage: 600MG ONCE A DAY AT NIGHT; DOSE INCREASED WHILST AN INPATIENT.
     Route: 048
     Dates: end: 20220412
  2. VALPROATE SODIUM [Suspect]
     Active Substance: VALPROATE SODIUM
     Indication: Schizoaffective disorder
     Dosage: UNKNOWN, DOSE INCREASED WHILST AN INPATIENT.
     Route: 065

REACTIONS (2)
  - Rash erythematous [Recovering/Resolving]
  - Off label use [Unknown]
